FAERS Safety Report 26032599 (Version 1)
Quarter: 2025Q4

REPORT INFORMATION
  Report Type: Spontaneous
  Country: EU (occurrence: EU)
  Receive Date: 20251112
  Receipt Date: 20251112
  Transmission Date: 20260117
  Serious: Yes (Other)
  Sender: NOVARTIS
  Company Number: EU-ITM MEDICAL ISOTOPES GMBH-ITMAT2025000392

PATIENT
  Age: 79 Year

DRUGS (6)
  1. LUTETIUM OXODOTREOTIDE LU-177 [Suspect]
     Active Substance: LUTETIUM OXODOTREOTIDE LU-177
     Indication: Pancreatic neuroendocrine tumour metastatic
     Dosage: 7.4 GBQ (CYCLE #1 OF AT LEAST 3 CYCLES OF [177LU]LU-DOTATATE AT 7.4 GBQ)
     Route: 065
  2. LUTETIUM OXODOTREOTIDE LU-177 [Suspect]
     Active Substance: LUTETIUM OXODOTREOTIDE LU-177
     Dosage: 7.4 GBQ (CYCLE #2 OF AT LEAST 3 CYCLES OF [177LU]LU-DOTATATE AT 7.4 GBQ)
     Route: 065
  3. LUTETIUM OXODOTREOTIDE LU-177 [Suspect]
     Active Substance: LUTETIUM OXODOTREOTIDE LU-177
     Dosage: 7.4 GBQ (CYCLE #3 OF AT LEAST 3 CYCLES OF [177LU]LU-DOTATATE AT 7.4 GBQ)
     Route: 065
  4. LUTETIUM CHLORIDE LU-177 [Suspect]
     Active Substance: LUTETIUM CHLORIDE LU-177
     Indication: Radioisotope therapy
     Dosage: 7.4 GBQ (CYCLE #1 OF AT LEAST 3 CYCLES OF [177LU]LU-DOTATATE AT 7.4 GBQ)
     Route: 065
  5. LUTETIUM CHLORIDE LU-177 [Suspect]
     Active Substance: LUTETIUM CHLORIDE LU-177
     Dosage: 7.4 GBQ (CYCLE #2 OF AT LEAST 3 CYCLES OF [177LU]LU-DOTATATE AT 7.4 GBQ)
     Route: 065
  6. LUTETIUM CHLORIDE LU-177 [Suspect]
     Active Substance: LUTETIUM CHLORIDE LU-177
     Dosage: 7.4 GBQ (CYCLE #3 OF AT LEAST 3 CYCLES OF [177LU]LU-DOTATATE AT 7.4 GBQ)
     Route: 065

REACTIONS (1)
  - Nephropathy toxic [Unknown]
